FAERS Safety Report 7319845-3 (Version None)
Quarter: 2011Q1

REPORT INFORMATION
  Report Type: 
  Country: None (occurrence: None)
  Receive Date: 20110228
  Receipt Date: 20101019
  Transmission Date: 20110831
  Serious: Yes (Other)
  Sender: FDA-Public Use
  Company Number: A0888131A

PATIENT
  Age: 66 Year
  Sex: Male

DRUGS (1)
  1. LAMICTAL [Suspect]
     Dosage: 200MG UNKNOWN
     Route: 048
     Dates: start: 20030716

REACTIONS (1)
  - CONVULSION [None]
